FAERS Safety Report 5376054-5 (Version None)
Quarter: 2007Q3

REPORT INFORMATION
  Report Type: 
  Country: None (occurrence: None)
  Receive Date: 20070702
  Receipt Date: 20070626
  Transmission Date: 20080115
  Serious: Yes (Hospitalization)
  Sender: FDA-Public Use
  Company Number: US-AMGEN-US231195

PATIENT
  Sex: Male

DRUGS (2)
  1. ENBREL [Suspect]
     Indication: RHEUMATOID ARTHRITIS
     Route: 058
     Dates: start: 19980101
  2. ARAVA [Concomitant]
     Route: 048

REACTIONS (6)
  - BRONCHITIS [None]
  - DIABETES MELLITUS [None]
  - HYPOTENSION [None]
  - NASAL SEPTUM DEVIATION [None]
  - OPERATIVE HAEMORRHAGE [None]
  - RHEUMATOID ARTHRITIS [None]
